FAERS Safety Report 14354202 (Version 1)
Quarter: 2018Q1

REPORT INFORMATION
  Report Type: Spontaneous
  Country: FR (occurrence: FR)
  Receive Date: 20180105
  Receipt Date: 20180105
  Transmission Date: 20180509
  Serious: Yes (Other)
  Sender: FDA-Public Use
  Company Number: FR-MERCK KGAA-2038461

PATIENT
  Age: 53 Year
  Sex: Female

DRUGS (1)
  1. NOVOTHYROX [Suspect]
     Active Substance: LEVOTHYROXINE SODIUM
     Indication: POST PROCEDURAL HYPOTHYROIDISM
     Dates: start: 201703, end: 2017

REACTIONS (12)
  - Suicidal ideation [None]
  - Gait disturbance [None]
  - Loss of personal independence in daily activities [None]
  - Gait inability [None]
  - Depressed mood [None]
  - Feeling abnormal [None]
  - Arthralgia [None]
  - Pain [None]
  - Crying [None]
  - Bone pain [None]
  - Alopecia [None]
  - Fatigue [None]

NARRATIVE: CASE EVENT DATE: 2017
